FAERS Safety Report 6397296-6 (Version None)
Quarter: 2009Q4

REPORT INFORMATION
  Report Type: 
  Country: None (occurrence: None)
  Receive Date: 20091012
  Receipt Date: 20091006
  Transmission Date: 20100525
  Serious: Yes (Life-Threatening, Hospitalization)
  Sender: FDA-Public Use
  Company Number: US-ASTRAZENECA-2009SE18187

PATIENT
  Age: 34 Year
  Sex: Female
  Weight: 86 kg

DRUGS (1)
  1. LIDOCAINE [Suspect]
     Dosage: SEVEN  GRAMS DILUTED IN 20 ML OF SALINE SOLUTION, INJECTED 20 TIMES
     Route: 058

REACTIONS (5)
  - CARDIAC ARREST [None]
  - CONVULSION [None]
  - INCORRECT ROUTE OF DRUG ADMINISTRATION [None]
  - INTENTIONAL DRUG MISUSE [None]
  - OVERDOSE [None]
